FAERS Safety Report 8551973-7 (Version None)
Quarter: 2012Q3

REPORT INFORMATION
  Report Type: 
  Country: None (occurrence: None)
  Receive Date: 20120730
  Receipt Date: 20120725
  Transmission Date: 20120928
  Serious: Yes (Life-Threatening, Hospitalization)
  Sender: FDA-Public Use
  Company Number: JP-ABBOTT-12P-087-0937098-00

PATIENT
  Age: 59 Year
  Sex: Male
  Weight: 67 kg

DRUGS (8)
  1. PREDNISOLONE [Concomitant]
     Indication: RHEUMATOID ARTHRITIS
     Route: 048
     Dates: end: 20120521
  2. MIZORIBINE [Concomitant]
     Indication: RHEUMATOID ARTHRITIS
     Dates: end: 20120521
  3. DICLOFENAC SODIUM [Concomitant]
     Indication: RHEUMATOID ARTHRITIS
     Route: 048
     Dates: end: 20120521
  4. RABEPRAZOLE SODIUM [Concomitant]
     Indication: PROPHYLAXIS
     Route: 048
     Dates: end: 20120521
  5. RHEUMATREX [Suspect]
     Indication: RHEUMATOID ARTHRITIS
     Route: 048
     Dates: end: 20120521
  6. REBAMIPIDE [Concomitant]
     Indication: PROPHYLAXIS
     Route: 048
     Dates: end: 20120521
  7. INSULIN HUMAN [Concomitant]
     Indication: DIABETES MELLITUS
     Route: 058
  8. HUMIRA [Suspect]
     Indication: RHEUMATOID ARTHRITIS
     Route: 058
     Dates: start: 20120508, end: 20120508

REACTIONS (2)
  - PNEUMONIA PNEUMOCOCCAL [None]
  - PYREXIA [None]
